FAERS Safety Report 7424860-5 (Version None)
Quarter: 2011Q2

REPORT INFORMATION
  Report Type: 
  Country: None (occurrence: None)
  Receive Date: 20110419
  Receipt Date: 20110413
  Transmission Date: 20111010
  Serious: Yes (Hospitalization)
  Sender: FDA-Public Use
  Company Number: US-GILEAD-2011-0038531

PATIENT
  Age: 22 Year
  Sex: Male

DRUGS (1)
  1. LETAIRIS [Suspect]
     Indication: PRODUCT USED FOR UNKNOWN INDICATION
     Route: 048
     Dates: start: 20090820

REACTIONS (4)
  - DECREASED APPETITE [None]
  - OROPHARYNGEAL PAIN [None]
  - DYSPNOEA [None]
  - PYREXIA [None]
